FAERS Safety Report 4350278-8 (Version None)
Quarter: 2004Q2

REPORT INFORMATION
  Report Type: 
  Country: None (occurrence: None)
  Receive Date: 20040426
  Receipt Date: 20040415
  Transmission Date: 20050107
  Serious: Yes (Life-Threatening)
  Sender: FDA-Public Use
  Company Number: JP-SHR-04-022977

PATIENT
  Age: 69 Year
  Sex: Male
  Weight: 63 kg

DRUGS (6)
  1. MAGNEVIST [Suspect]
     Indication: NUCLEAR MAGNETIC RESONANCE IMAGING
     Dosage: 12 ML, 1 DOSE, INTRAVENOUS
     Route: 042
     Dates: start: 20040319, end: 20040319
  2. ONCOVIN (VINCRISTINE SULFATE) INJECTION [Concomitant]
  3. ADRIACIN (DOXORUBICIN HYDROCHLORIDE) INJECTION [Concomitant]
  4. DECADRON [Concomitant]
  5. CRAVIT (LEVOFLOXACIN) TALBET [Concomitant]
  6. NINOPEN INJECTION [Concomitant]

REACTIONS (5)
  - CONDITION AGGRAVATED [None]
  - HYPOXIA [None]
  - INTERSTITIAL LUNG DISEASE [None]
  - MULTIPLE MYELOMA [None]
  - STAPHYLOCOCCAL SEPSIS [None]
